FAERS Safety Report 6380969-9 (Version None)
Quarter: 2009Q3

REPORT INFORMATION
  Report Type: 
  Country: None (occurrence: None)
  Receive Date: 20090929
  Receipt Date: 20090915
  Transmission Date: 20100115
  Serious: Yes (Death)
  Sender: FDA-Public Use
  Company Number: US-MYLANLABS-2009S1016399

PATIENT
  Age: 46 Year
  Sex: Male
  Weight: 99.79 kg

DRUGS (6)
  1. FENTANYL TRANSDERMAL SYSTEM [Suspect]
     Indication: PAIN
     Dates: end: 20090206
  2. ZOLOFT [Concomitant]
  3. OXYCONTIN [Concomitant]
  4. VALIUM [Concomitant]
  5. MOBIC [Concomitant]
  6. METOPROLOL SUCCINATE [Concomitant]

REACTIONS (2)
  - ACCIDENTAL OVERDOSE [None]
  - THERAPEUTIC AGENT TOXICITY [None]
